FAERS Safety Report 9981890 (Version 1)
Quarter: 2014Q1

REPORT INFORMATION
  Report Type: Spontaneous
  Country: US (occurrence: None)
  Receive Date: 20140127
  Receipt Date: 20140127
  Transmission Date: 20141002
  Serious: Yes (Life-Threatening, Hospitalization)
  Sender: FDA-Public Use
  Company Number: 1202321

PATIENT
  Age: 66 Year
  Sex: Male
  Weight: 68.04 kg

DRUGS (9)
  1. RITUXAN [Suspect]
     Indication: DIFFUSE LARGE B-CELL LYMPHOMA
     Dosage: 635MG, 1 IN 2 WK, INTRAVENOUS
     Route: 042
     Dates: start: 20121202, end: 20130112
  2. CYCLOPHOSPHAMIDE (CYCLOPHOSPHAMIDE) [Concomitant]
  3. PREDNISONE (PREDNISONE) [Concomitant]
  4. VINCRISTINE (VINCRISTINE) [Concomitant]
  5. DOXORUBICIN (DOXORUBICIN) [Concomitant]
  6. EMEND (APREPITANT) [Concomitant]
  7. PEPCID (FAMOTIDINE) [Concomitant]
  8. ALOXI (PALONOSETRON HYDROCHLORIDE) INJECTION, 0.25MG/5ML [Concomitant]
  9. DECADRON (DEXAMETHASONE) [Concomitant]

REACTIONS (2)
  - Respiratory distress [None]
  - Hypersensitivity [None]
